FAERS Safety Report 8475123-0 (Version None)
Quarter: 2012Q2

REPORT INFORMATION
  Report Type: 
  Country: None (occurrence: None)
  Receive Date: 20120628
  Receipt Date: 20120621
  Transmission Date: 20120825
  Serious: Yes (Other)
  Sender: FDA-Public Use
  Company Number: US-BAYER-2012-062974

PATIENT
  Age: 39 Year
  Sex: Female

DRUGS (7)
  1. YAZ [Suspect]
  2. IBUPROFEN [Concomitant]
     Indication: HEADACHE
     Dosage: UNK
     Dates: start: 20110123
  3. DROSPIRENONE AND ETHINYL ESTRADIOL [Suspect]
  4. BEYAZ [Suspect]
  5. SYNTHROID [Concomitant]
     Indication: HYPOTHYROIDISM
     Dosage: 25 ?G, DAILY
  6. BENADRYL [Concomitant]
     Indication: URTICARIA
  7. PREDNISONE TAB [Concomitant]
     Indication: URTICARIA
     Dosage: 40 MG, DAILY

REACTIONS (1)
  - CEREBROVASCULAR ACCIDENT [None]
